FAERS Safety Report 4647461-0 (Version None)
Quarter: 2005Q2

REPORT INFORMATION
  Report Type: 
  Country: None (occurrence: None)
  Receive Date: 20050428
  Receipt Date: 20050415
  Transmission Date: 20051028
  Serious: Yes (Hospitalization)
  Sender: FDA-Public Use
  Company Number: FR-JNJFOC-20050404045

PATIENT
  Age: 25 Year
  Sex: Male

DRUGS (1)
  1. RISPERDAL CONSTA [Suspect]
     Route: 030
     Dates: start: 20050301

REACTIONS (1)
  - MENINGITIS PNEUMOCOCCAL [None]
